FAERS Safety Report 7424459-0 (Version None)
Quarter: 2011Q2

REPORT INFORMATION
  Report Type: 
  Country: None (occurrence: None)
  Receive Date: 20110419
  Receipt Date: 20110414
  Transmission Date: 20111010
  Serious: Yes (Hospitalization, Other)
  Sender: FDA-Public Use
  Company Number: JP-PFIZER INC-2011079599

PATIENT
  Age: 79 Year
  Sex: Female

DRUGS (6)
  1. ACTONEL [Concomitant]
     Dosage: 17.5 MG, WEEKLY
     Route: 048
  2. LIPITOR [Concomitant]
     Route: 048
  3. LYRICA [Suspect]
     Indication: POST HERPETIC NEURALGIA
     Dosage: 75 MG, 2X/DAY
     Route: 048
     Dates: start: 20100622
  4. CELECOX [Concomitant]
     Dosage: UNK
     Route: 048
  5. HALCION [Suspect]
     Dosage: UNK
     Route: 048
  6. MERCAZOLE [Concomitant]

REACTIONS (5)
  - FALL [None]
  - INCONTINENCE [None]
  - LOSS OF CONSCIOUSNESS [None]
  - CONVULSION [None]
  - MUSCULAR WEAKNESS [None]
